FAERS Safety Report 5013014-8 (Version None)
Quarter: 2006Q2

REPORT INFORMATION
  Report Type: 
  Country: None (occurrence: None)
  Receive Date: 20060530
  Receipt Date: 20051027
  Transmission Date: 20061013
  Serious: Yes (Hospitalization)
  Sender: FDA-Public Use
  Company Number: US-GLAXOSMITHKLINE-A0580304A

PATIENT
  Age: 36 Year
  Sex: Female
  Weight: 65 kg

DRUGS (5)
  1. WELLBUTRIN [Suspect]
     Indication: DEPRESSION
     Dosage: 300MG PER DAY
     Route: 048
     Dates: start: 20031215, end: 20051026
  2. WELLBUTRIN SR [Suspect]
     Dosage: 150MG TWICE PER DAY
     Route: 048
     Dates: start: 20031205
  3. AMBIEN [Concomitant]
  4. ZOLOFT [Concomitant]
     Indication: ANXIETY DISORDER
     Dates: start: 20040816
  5. LORTAB [Concomitant]
     Dates: start: 20031125

REACTIONS (6)
  - CONVULSION [None]
  - HEADACHE [None]
  - MEMORY IMPAIRMENT [None]
  - NECK PAIN [None]
  - POSTICTAL STATE [None]
  - TONIC CLONIC MOVEMENTS [None]
